FAERS Safety Report 9291965 (Version 1)
Quarter: 2012Q4

REPORT INFORMATION
  Report Type: Spontaneous
  Country: US (occurrence: None)
  Receive Date: 20121024
  Receipt Date: 20121024
  Transmission Date: 20130627
  Serious: Yes (Other)
  Sender: FDA-Public Use
  Company Number: ACO_32062_2012

PATIENT
  Age: 50 Year
  Sex: Female
  Weight: 54.9 kg

DRUGS (25)
  1. AMPYRA (DALFAMPRIDINE) TABLET, 10MG [Suspect]
     Indication: GAIT DISTURBANCE
     Route: 048
  2. MORPHINE (MORPHINE) (UNKNOWN) (MORPHINE) [Suspect]
     Indication: MULTIPLE SCLEROSIS FLARE
     Dates: start: 20120919, end: 20120919
  3. ALL OTHER THERAPEUTICS PRODUCTS [Concomitant]
  4. ASA (ACETYLSALICYLIC ACID) [Concomitant]
  5. AVONEX (INTERFERON BETA-1A) [Concomitant]
  6. CALCIUM (CALCIUM) [Concomitant]
  7. CARBAMAZEPIN (CARBAMAZEPINE) [Concomitant]
  8. CARVEDILOL (CARVEDILOL) [Concomitant]
  9. CLOBETASOL (CLOBETASOL PROPIONATE) [Concomitant]
  10. CYCLOBENZAPRINE (CYCLOBENZAPRINE HYDROCHLORIDE) [Concomitant]
  11. DOCUSATE SOD (DOCUSATE SODIUM) [Concomitant]
  12. FERROUS SULFATE (FERROUS SULFATE) [Concomitant]
  13. LISINOPRIL (LISINOPRIL) [Concomitant]
  14. LORATADINE (LORATADINE) [Concomitant]
  15. NABUMETONE (NABUMETONE) [Concomitant]
  16. NASONEX (MOMETASONE FUROATE) [Concomitant]
  17. NITROTAB (GLYCERYL TRINITRATE) [Concomitant]
  18. OXYBUTYNIN (OXYBUTYNIN HYDROCHLORIDE) [Concomitant]
  19. OYSTER SHELL CALCIUM (CALCIUM CARBONATE) [Concomitant]
  20. SIMVASTATIN (SIMVASTATIN) [Concomitant]
  21. TEMAZEPAM (TEMAZEPAM) [Concomitant]
  22. TIZANIDINE (TIZANIDINE HYDROCHLORIDE) [Concomitant]
  23. TRIAMCINOLONE (TRIAMCINOLONE ACETONIDE) [Concomitant]
  24. TYLENOL (PARACETAMOL) [Concomitant]
  25. VITAMIN D (ERGOCALCIFEROL) [Concomitant]

REACTIONS (7)
  - Myocardial infarction [None]
  - Multiple sclerosis relapse [None]
  - Lymphadenopathy [None]
  - Skin exfoliation [None]
  - Sedation [None]
  - Nausea [None]
  - Oropharyngeal pain [None]
